FAERS Safety Report 9492109 (Version 2)
Quarter: 2013Q3

REPORT INFORMATION
  Report Type: Spontaneous
  Country: US (occurrence: US)
  Receive Date: 20130830
  Receipt Date: 20130927
  Transmission Date: 20140515
  Serious: Yes (Death, Hospitalization, Other)
  Sender: FDA-Public Use
  Company Number: US-AMGEN-USASP2013060581

PATIENT
  Age: 84 Year
  Sex: Female
  Weight: 90.7 kg

DRUGS (15)
  1. PROLIA [Suspect]
     Indication: OSTEOPOROSIS
     Dosage: 60 MG, Q4WK
     Route: 058
  2. PRADAXA [Concomitant]
     Dosage: 75 MG, BID
     Route: 048
     Dates: start: 20120813
  3. PREDNISONE [Concomitant]
     Dosage: UNK UNK, QD
     Route: 048
     Dates: start: 20111213
  4. LISINOPRIL [Concomitant]
     Dosage: 20 MG, QD
     Route: 048
     Dates: start: 20120815
  5. CITALOPRAM HYDROBROMIDE [Concomitant]
     Dosage: 20 MG, BID
     Route: 048
     Dates: start: 20120810
  6. DONEPEZIL HCL [Concomitant]
     Dosage: 10 MG, QD
     Route: 048
     Dates: start: 20111021
  7. MULTIVITAMIN                       /00097801/ [Concomitant]
     Dosage: UNK UNK, 3 TIMES/WK
     Route: 048
     Dates: start: 20111107
  8. SIMVASTATIN [Concomitant]
     Dosage: 10 MG, 1/2 QD
     Route: 048
  9. MECLIZINE HCL [Concomitant]
     Dosage: 25 MG, BID
     Route: 048
     Dates: start: 20120813
  10. FUROSEMIDE [Concomitant]
     Dosage: 20 MG, QD AS NECESSARY
     Route: 048
     Dates: start: 20120307, end: 20120924
  11. NORCO [Concomitant]
     Dosage: 5-325 MG, Q4H
     Route: 048
     Dates: start: 20120618, end: 20120924
  12. VACINA INFLUENZA [Concomitant]
     Dosage: UNK
  13. CELEXA                             /00582602/ [Concomitant]
  14. ARICEPT [Concomitant]
  15. NAMENDA [Concomitant]

REACTIONS (37)
  - Myocardial infarction [Fatal]
  - Somnolence [Unknown]
  - Decreased appetite [Unknown]
  - Weight decreased [Unknown]
  - Drug interaction [Unknown]
  - Diabetes mellitus [Unknown]
  - Depression [Unknown]
  - Arthropathy [Unknown]
  - Cardiac failure [Unknown]
  - Wheelchair user [Unknown]
  - Asthenia [Unknown]
  - Constipation [Unknown]
  - Dementia [Unknown]
  - Essential hypertension [Unknown]
  - Hypokalaemia [Unknown]
  - Haemorrhage [Unknown]
  - Bloody discharge [Unknown]
  - Oedema [Unknown]
  - Migraine [Unknown]
  - Laboratory test abnormal [Unknown]
  - Blood test abnormal [Unknown]
  - Headache [Unknown]
  - Influenza [Unknown]
  - Decreased activity [Unknown]
  - Hyperthyroidism [Unknown]
  - Malaise [Unknown]
  - Neuralgia [Unknown]
  - Neuritis [Unknown]
  - Radiculitis [Unknown]
  - Anxiety [Unknown]
  - Fatigue [Unknown]
  - Back pain [Unknown]
  - Arthralgia [Unknown]
  - Anaemia [Unknown]
  - Pain [Unknown]
  - Hypercholesterolaemia [Unknown]
  - Osteoarthritis [Unknown]
